FAERS Safety Report 6045657-7 (Version None)
Quarter: 2009Q1

REPORT INFORMATION
  Report Type: 
  Country: None (occurrence: None)
  Receive Date: 20090121
  Receipt Date: 20090116
  Transmission Date: 20090719
  Serious: Yes (Death)
  Sender: FDA-Public Use
  Company Number: US-BAYER-200833545GPV

PATIENT
  Age: 24 Year
  Sex: Male

DRUGS (1)
  1. ASPIRIN [Suspect]
     Route: 048

REACTIONS (9)
  - BELLIGERENCE [None]
  - DISORIENTATION [None]
  - DRUG TOXICITY [None]
  - HEPATOSPLENOMEGALY [None]
  - HYPERHIDROSIS [None]
  - LIVER DISORDER [None]
  - PULMONARY OEDEMA [None]
  - SOMNOLENCE [None]
  - TACHYPNOEA [None]
